FAERS Safety Report 24122786 (Version 1)
Quarter: 2024Q3

REPORT INFORMATION
  Report Type: Report from Study
  Country: US (occurrence: None)
  Receive Date: 20240723
  Receipt Date: 20240723
  Transmission Date: 20241017
  Serious: Yes (Hospitalization, Other)
  Sender: ASTRAZENECA
  Company Number: 2020SE07309

PATIENT
  Sex: Male

DRUGS (1)
  1. LYNPARZA [Suspect]
     Active Substance: OLAPARIB
     Route: 048
     Dates: start: 201912

REACTIONS (7)
  - Disorientation [Unknown]
  - Dysarthria [Unknown]
  - Adverse event [Unknown]
  - Dizziness [Unknown]
  - White blood cell count decreased [Unknown]
  - Visual impairment [Unknown]
  - Dyschezia [Unknown]
